FAERS Safety Report 7511980-X (Version None)
Quarter: 2011Q2

REPORT INFORMATION
  Report Type: 
  Country: None (occurrence: None)
  Receive Date: 20110520
  Receipt Date: 20110510
  Transmission Date: 20111010
  Serious: Yes (Death, Hospitalization)
  Sender: FDA-Public Use
  Company Number: DSA_46722_2011

PATIENT
  Age: 80 Year
  Sex: Male

DRUGS (3)
  1. MONO-TILDIEM (MONO-TILDIEM-DILTIAZEM HYDROCHLORIDE) 200 MG (NOT SPECIF [Suspect]
     Indication: HYPERTENSION
     Dosage: (200 MG, FREQUENCY UNKNOWN)
  2. HEMICOXINE NATIVELLE (HEMIGOXINE NATIVELLE-DIGOXIN) 0.125 MG (NOT SPEC [Suspect]
     Indication: ATRIAL FIBRILLATION
     Dosage: (0.125 MG, FREQUENCY UNKNOWN)
  3. PREVISCAN /00789001/ (PREVISCAN-FLUIDIONE) 20 MG (NOT SPECIFIED) [Suspect]
     Indication: ATRIAL FIBRILLATION
     Dosage: (20 MG, FREQUENCY UNKNOWN)
     Dates: end: 20110313

REACTIONS (4)
  - SINUS BRADYCARDIA [None]
  - CARDIAC ARREST [None]
  - THALAMUS HAEMORRHAGE [None]
  - TACHYCARDIA [None]
